FAERS Safety Report 6301475-3 (Version None)
Quarter: 2009Q3

REPORT INFORMATION
  Report Type: 
  Country: None (occurrence: None)
  Receive Date: 20090806
  Receipt Date: 20090806
  Transmission Date: 20100115
  Serious: No
  Sender: FDA-Public Use
  Company Number: None

PATIENT
  Sex: Male
  Weight: 72.5755 kg

DRUGS (1)
  1. AMBIEN CR [Suspect]
     Dosage: 6 DAYS PER WK

REACTIONS (4)
  - GAIT DISTURBANCE [None]
  - HEADACHE [None]
  - MIDDLE INSOMNIA [None]
  - SOMNOLENCE [None]
